FAERS Safety Report 6081387-3 (Version None)
Quarter: 2009Q1

REPORT INFORMATION
  Report Type: 
  Country: None (occurrence: None)
  Receive Date: 20090218
  Receipt Date: 20090209
  Transmission Date: 20090719
  Serious: Yes (Other)
  Sender: FDA-Public Use
  Company Number: US-CELGENEUS-163-21880-09020564

PATIENT
  Sex: Female

DRUGS (2)
  1. REVLIMID [Suspect]
     Indication: MYELODYSPLASTIC SYNDROME
     Route: 048
     Dates: start: 20090130
  2. REVLIMID [Suspect]
     Route: 048
     Dates: start: 20081107, end: 20090101

REACTIONS (2)
  - DIARRHOEA [None]
  - HAEMORRHAGE [None]
